FAERS Safety Report 16800333 (Version 2)
Quarter: 2020Q3

REPORT INFORMATION
  Report Type: Spontaneous
  Country: AT (occurrence: AT)
  Receive Date: 20190912
  Receipt Date: 20200811
  Transmission Date: 20201102
  Serious: Yes (Hospitalization, Other)
  Sender: FDA-Public Use
  Company Number: AT-SAMSUNG BIOEPIS-SB-2019-26489

PATIENT
  Age: 44 Year
  Sex: Female

DRUGS (1)
  1. INFLIXIMAB [Suspect]
     Active Substance: INFLIXIMAB
     Indication: CROHN^S DISEASE
     Dosage: UNKNOWN?HAD BEEN RECEIVING INFLIXIMAB FOR 2.5 YEARS
     Route: 065

REACTIONS (5)
  - Brain stem infarction [Recovered/Resolved]
  - Central nervous system vasculitis [Recovered/Resolved]
  - Radiculopathy [Recovered/Resolved]
  - Neuroborreliosis [Recovered/Resolved]
  - Headache [Recovered/Resolved]
